FAERS Safety Report 18464344 (Version 1)
Quarter: 2020Q4

REPORT INFORMATION
  Report Type: Report from Study
  Country: FR (occurrence: FR)
  Receive Date: 20201104
  Receipt Date: 20201104
  Transmission Date: 20210114
  Serious: Yes (Life-Threatening, Hospitalization, Other)
  Sender: FDA-Public Use
  Company Number: FR-JAZZ-2017-FR-008973

PATIENT

DRUGS (1)
  1. DEFITELIO [Suspect]
     Active Substance: DEFIBROTIDE SODIUM
     Indication: VENOOCCLUSIVE DISEASE
     Dosage: 28MILLIGRAM/KILOGRAM/DAY
     Route: 042
     Dates: start: 20160121, end: 20160219

REACTIONS (16)
  - Pulmonary calcification [Recovered/Resolved]
  - Cutaneous calcification [Recovered/Resolved]
  - Cardiac hypertrophy [Unknown]
  - Off label use [Unknown]
  - Posterior reversible encephalopathy syndrome [Recovered/Resolved]
  - Pneumonia klebsiella [Unknown]
  - Sinus bradycardia [Unknown]
  - Poikiloderma [Unknown]
  - Diarrhoea [Unknown]
  - Lichenoid keratosis [Unknown]
  - Multiple organ dysfunction syndrome [Recovered/Resolved]
  - Pericardial effusion [Recovered/Resolved]
  - Acute graft versus host disease [Unknown]
  - Hepatic calcification [Recovered/Resolved]
  - Acute respiratory distress syndrome [Recovered/Resolved with Sequelae]
  - Cerebrovascular insufficiency [Unknown]

NARRATIVE: CASE EVENT DATE: 20160121
